FAERS Safety Report 8185541-6 (Version None)
Quarter: 2012Q1

REPORT INFORMATION
  Report Type: 
  Country: None (occurrence: None)
  Receive Date: 20120305
  Receipt Date: 20120222
  Transmission Date: 20120608
  Serious: Yes (Other)
  Sender: FDA-Public Use
  Company Number: DE-ELI_LILLY_AND_COMPANY-DE201202006578

PATIENT
  Age: 72 Year
  Sex: Male

DRUGS (2)
  1. HUMALOG [Suspect]
     Indication: TYPE 2 DIABETES MELLITUS
     Dosage: UNK
     Route: 058
     Dates: start: 20000101
  2. HUMULIN N [Suspect]
     Route: 058

REACTIONS (3)
  - BLOOD GLUCOSE INCREASED [None]
  - VERTIGO POSITIONAL [None]
  - CEREBRAL INFARCTION [None]
